FAERS Safety Report 22791551 (Version 3)
Quarter: 2023Q4

REPORT INFORMATION
  Report Type: Spontaneous
  Country: JP (occurrence: JP)
  Receive Date: 20230807
  Receipt Date: 20231030
  Transmission Date: 20240110
  Serious: Yes (Hospitalization, Other)
  Sender: FDA-Public Use
  Company Number: JP-NOVOPROD-1094222

PATIENT
  Age: 17 Year
  Sex: Male
  Weight: 54 kg

DRUGS (12)
  1. ESPEROCT [Suspect]
     Active Substance: ANTIHEMOPHILIC FACTOR, HUMAN RECOMBINANT
     Dosage: 3000.00IU
     Route: 042
     Dates: start: 20230626, end: 20230626
  2. ESPEROCT [Suspect]
     Active Substance: ANTIHEMOPHILIC FACTOR, HUMAN RECOMBINANT
     Dosage: 3000.00IU
     Route: 042
     Dates: start: 20230626, end: 20230626
  3. ESPEROCT [Suspect]
     Active Substance: ANTIHEMOPHILIC FACTOR, HUMAN RECOMBINANT
     Dosage: 3000.00IU
     Route: 042
     Dates: start: 20230626, end: 20230626
  4. ESPEROCT [Suspect]
     Active Substance: ANTIHEMOPHILIC FACTOR, HUMAN RECOMBINANT
     Dosage: 3000.00IU
     Route: 042
     Dates: start: 20230629, end: 20230629
  5. ESPEROCT [Suspect]
     Active Substance: ANTIHEMOPHILIC FACTOR, HUMAN RECOMBINANT
     Dosage: 3000.00IU
     Route: 042
     Dates: start: 20230703, end: 20230703
  6. ESPEROCT [Suspect]
     Active Substance: ANTIHEMOPHILIC FACTOR, HUMAN RECOMBINANT
     Indication: Factor VIII deficiency
     Dosage: 3000.00IU
     Route: 042
     Dates: start: 20230626, end: 20230626
  7. ESPEROCT [Suspect]
     Active Substance: ANTIHEMOPHILIC FACTOR, HUMAN RECOMBINANT
     Dosage: 3000.00IU
     Route: 042
     Dates: start: 20230710, end: 20230710
  8. ESPEROCT [Suspect]
     Active Substance: ANTIHEMOPHILIC FACTOR, HUMAN RECOMBINANT
     Dosage: 3000.00IU
     Route: 042
     Dates: start: 20230712, end: 20230712
  9. ESPEROCT [Suspect]
     Active Substance: ANTIHEMOPHILIC FACTOR, HUMAN RECOMBINANT
     Dosage: 3000.00IU
     Route: 042
     Dates: start: 20230713, end: 20230713
  10. ESPEROCT [Suspect]
     Active Substance: ANTIHEMOPHILIC FACTOR, HUMAN RECOMBINANT
     Dosage: 3000.00IU
     Route: 042
     Dates: start: 20230714, end: 20230714
  11. ESPEROCT [Suspect]
     Active Substance: ANTIHEMOPHILIC FACTOR, HUMAN RECOMBINANT
     Dosage: 3000.00IU
     Route: 042
     Dates: end: 20230717
  12. ESPEROCT [Suspect]
     Active Substance: ANTIHEMOPHILIC FACTOR, HUMAN RECOMBINANT
     Dosage: 3000.00IU
     Route: 042
     Dates: start: 20230706, end: 20230706

REACTIONS (3)
  - Activated partial thromboplastin time prolonged [Recovered/Resolved]
  - Muscle haemorrhage [Recovered/Resolved]
  - Anti-polyethylene glycol antibody present [Unknown]

NARRATIVE: CASE EVENT DATE: 20230714
